FAERS Safety Report 5244972-4 (Version None)
Quarter: 2007Q1

REPORT INFORMATION
  Report Type: 
  Country: None (occurrence: None)
  Receive Date: 20070221
  Receipt Date: 20070221
  Transmission Date: 20070707
  Serious: Yes (Hospitalization)
  Sender: FDA-Public Use
  Company Number: None

PATIENT
  Age: 75 Year
  Sex: Female
  Weight: 88 kg

DRUGS (13)
  1. OXYCODONE 5 MG [Suspect]
     Indication: BACK PAIN
     Dosage: 5 MG  1-2 TABS TID PRN PO
     Route: 048
  2. HYDROCODONE/ACETAMINOPHEN  10/325MG [Suspect]
     Indication: BACK PAIN
     Dosage: 10/325 MG 1-2 TABS Q4H PRN PO
     Route: 048
  3. ALPRAZOLAM [Concomitant]
  4. METOPROLOL TARTRATE [Concomitant]
  5. FUROSEMIDE [Concomitant]
  6. COZAAR [Concomitant]
  7. LEVOXYL [Concomitant]
  8. LIPITOR [Concomitant]
  9. ASPIRIN [Concomitant]
  10. CENTRUM MULTIVITAMIN [Concomitant]
  11. VITAMIN E [Concomitant]
  12. NOVOLOG [Concomitant]
  13. LANTUS [Concomitant]

REACTIONS (3)
  - HYPERHIDROSIS [None]
  - HYPOGLYCAEMIA [None]
  - LETHARGY [None]
